FAERS Safety Report 19005112 (Version 3)
Quarter: 2021Q1

REPORT INFORMATION
  Report Type: Report from Study
  Country: None (occurrence: BE)
  Receive Date: 20210312
  Receipt Date: 20210327
  Transmission Date: 20210420
  Serious: Yes (Death, Hospitalization)
  Sender: FDA-Public Use
  Company Number: BE-ABBVIE-21K-013-3813878-00

PATIENT
  Age: 67 Year
  Sex: Female

DRUGS (5)
  1. FOLAVIT [Concomitant]
     Active Substance: FOLIC ACID
     Indication: PRODUCT USED FOR UNKNOWN INDICATION
     Dosage: 4 MG 1X/DAY
  2. IBRUTINIB [Suspect]
     Active Substance: IBRUTINIB
     Indication: CHRONIC LYMPHOCYTIC LEUKAEMIA
     Route: 048
     Dates: start: 20150811, end: 20200529
  3. VITAMIN B12 [Concomitant]
     Active Substance: CYANOCOBALAMIN
     Indication: PRODUCT USED FOR UNKNOWN INDICATION
     Dosage: 1 IM INJECTION 1X/3 MONTHS
  4. DAKTARIN [MICONAZOLE] [Concomitant]
     Active Substance: MICONAZOLE
     Indication: VULVOVAGINAL MYCOTIC INFECTION
     Dosage: 1X/DAY UNTIL 5/6/2020
  5. ZOVIRAX [Concomitant]
     Active Substance: ACYCLOVIR
     Indication: PRODUCT USED FOR UNKNOWN INDICATION
     Dosage: 800 MG 1X/DAY

REACTIONS (2)
  - General physical condition abnormal [Fatal]
  - Pyelonephritis acute [Recovered/Resolved with Sequelae]

NARRATIVE: CASE EVENT DATE: 20200518
